FAERS Safety Report 8326468-6 (Version None)
Quarter: 2012Q2

REPORT INFORMATION
  Report Type: 
  Country: None (occurrence: None)
  Receive Date: 20120501
  Receipt Date: 20090723
  Transmission Date: 20120825
  Serious: No
  Sender: FDA-Public Use
  Company Number: US-TEVA-2009008885

PATIENT
  Sex: Female

DRUGS (23)
  1. ARTHRITIS APAP [Concomitant]
     Dates: start: 20090501
  2. CYMBALTA [Concomitant]
     Dates: start: 20090701
  3. VITAMIN D [Concomitant]
     Dates: start: 20090101
  4. TRAMADOL HCL [Concomitant]
     Dates: start: 19890101
  5. SENIOR MULTIVITAMIN [Concomitant]
  6. RANITIDINE [Concomitant]
     Dates: start: 20090101
  7. HYDROCHLOROTHIAZIDE [Concomitant]
     Dates: start: 19920101
  8. WELCHOL [Concomitant]
     Dates: start: 20050101
  9. NUVIGIL [Suspect]
     Indication: SLEEP APNOEA SYNDROME
  10. DOCUSATE SOD [Concomitant]
     Dates: start: 20090601
  11. TOPIRAMATE [Concomitant]
     Dates: start: 20090601
  12. LEVOTHYROXINE SODIUM [Concomitant]
     Dates: start: 19860101
  13. VESICARE [Concomitant]
     Dates: start: 20090101
  14. IBUPROFEN [Concomitant]
     Dates: start: 20090401
  15. BENTYL [Concomitant]
     Dates: start: 20090701
  16. PROCHLOPERAZINE [Concomitant]
     Dates: start: 19960101
  17. L-CARNITINE [Concomitant]
     Dates: start: 20090401
  18. BONIVA [Concomitant]
     Dates: start: 20090701
  19. VICODIN [Concomitant]
  20. SKELAXIN [Concomitant]
     Dates: start: 20090701
  21. NUVIGIL [Suspect]
     Indication: NARCOLEPSY
     Dosage: 150 MILLIGRAM;
     Route: 048
     Dates: start: 20090723
  22. COENZYME Q12 [Concomitant]
     Dates: start: 20090401
  23. GLUCOSAMINE CHONDROITIN [Concomitant]
     Dates: start: 20090101

REACTIONS (5)
  - PAIN IN JAW [None]
  - PHOTOPHOBIA [None]
  - HYPERACUSIS [None]
  - MUSCULOSKELETAL PAIN [None]
  - HEADACHE [None]
